FAERS Safety Report 4971257-3 (Version None)
Quarter: 2006Q2

REPORT INFORMATION
  Report Type: 
  Country: None (occurrence: None)
  Receive Date: 20060413
  Receipt Date: 20050930
  Transmission Date: 20061013
  Serious: Yes (Hospitalization, Disabling)
  Sender: FDA-Public Use
  Company Number: US-MERCK-0510USA02186

PATIENT
  Age: 58 Year
  Sex: Male
  Weight: 91 kg

DRUGS (1)
  1. VIOXX [Suspect]
     Indication: OSTEOARTHRITIS
     Route: 048
     Dates: start: 20000317, end: 20021101

REACTIONS (12)
  - AORTIC ANEURYSM [None]
  - CHEST PAIN [None]
  - DYSPNOEA [None]
  - ERECTILE DYSFUNCTION [None]
  - FATIGUE [None]
  - HAEMORRHOIDAL HAEMORRHAGE [None]
  - HYPERCHOLESTEROLAEMIA [None]
  - HYPERGLYCAEMIA [None]
  - MUSCLE SPASMS [None]
  - PERIPHERAL VASCULAR DISORDER [None]
  - PROCEDURAL PAIN [None]
  - SCAR [None]
